FAERS Safety Report 13582363 (Version 1)
Quarter: 2017Q2

REPORT INFORMATION
  Report Type: Spontaneous
  Country: NL (occurrence: NL)
  Receive Date: 20170525
  Receipt Date: 20170525
  Transmission Date: 20170830
  Serious: Yes (Other)
  Sender: FDA-Public Use
  Company Number: NL-ABBVIE-17P-114-1970101-00

PATIENT
  Age: 42 Year
  Sex: Female

DRUGS (2)
  1. MICROGYNON (ETHINYLESTRADIOL/LEVONORGESTREL) [Concomitant]
     Indication: PRODUCT USED FOR UNKNOWN INDICATION
     Route: 065
  2. DEPAKINE CHRONO [Suspect]
     Active Substance: VALPROATE SODIUM
     Indication: PRODUCT USED FOR UNKNOWN INDICATION
     Dosage: TABLET, EXTENDED RELEASE
     Route: 048
     Dates: start: 20170226

REACTIONS (2)
  - Epilepsy [Recovered/Resolved]
  - Product use issue [Recovered/Resolved]
